FAERS Safety Report 5596328-2 (Version None)
Quarter: 2008Q1

REPORT INFORMATION
  Report Type: 
  Country: None (occurrence: None)
  Receive Date: 20080118
  Receipt Date: 20080115
  Transmission Date: 20080703
  Serious: Yes (Hospitalization, Other)
  Sender: FDA-Public Use
  Company Number: US-MERCK-0707USA03279

PATIENT
  Age: 80 Year
  Sex: Female

DRUGS (6)
  1. FOSAMAX [Suspect]
     Route: 048
     Dates: start: 20010101, end: 20060101
  2. ACTONEL [Concomitant]
     Indication: OSTEOPOROSIS
     Route: 065
     Dates: start: 20010901, end: 20050901
  3. SYNTHROID [Concomitant]
     Indication: HYPOTHYROIDISM
     Route: 065
     Dates: start: 19990101
  4. HYDROCHLOROTHIAZIDE [Concomitant]
     Indication: HYPERTENSION
     Route: 065
     Dates: start: 19990101
  5. HYDROCHLOROTHIAZIDE [Concomitant]
     Indication: FLUID RETENTION
     Route: 065
     Dates: start: 19990101
  6. ENALAPRIL MALEATE [Concomitant]
     Indication: HYPERTENSION
     Route: 065
     Dates: start: 20050101

REACTIONS (11)
  - ADVERSE EVENT [None]
  - ATELECTASIS [None]
  - CAROTID ARTERY DISEASE [None]
  - EYE PENETRATION [None]
  - FALL [None]
  - OSTEOMYELITIS [None]
  - OSTEONECROSIS [None]
  - SYNCOPE [None]
  - TOOTH DISORDER [None]
  - TRAUMATIC ULCER [None]
  - UPPER LIMB FRACTURE [None]
